FAERS Safety Report 7371083-4 (Version None)
Quarter: 2011Q1

REPORT INFORMATION
  Report Type: 
  Country: None (occurrence: None)
  Receive Date: 20110324
  Receipt Date: 20091122
  Transmission Date: 20110831
  Serious: Yes (Death, Other)
  Sender: FDA-Public Use
  Company Number: US-BAYER-200940725NA

PATIENT
  Sex: Male
  Weight: 54.422 kg

DRUGS (33)
  1. AVANDAMET [Concomitant]
     Dosage: 2/1000MG, DAILY
     Route: 048
  2. KEFZOL [Concomitant]
     Dosage: 2 G, UNK
     Route: 042
     Dates: start: 20050513, end: 20050513
  3. HEPARIN [Concomitant]
     Dosage: UNK
     Route: 042
     Dates: start: 20050513, end: 20050513
  4. NEO-SYNEPHRINOL [Concomitant]
     Dosage: PUMP
     Dates: start: 20050513, end: 20050513
  5. FORANE [Concomitant]
     Dosage: UNK
     Route: 042
     Dates: start: 20050513, end: 20050513
  6. COREG [Concomitant]
     Dosage: 3.125 MG, BID
     Route: 048
  7. LOTENSIN [Concomitant]
     Dosage: 10 MG, QD
     Route: 048
  8. CARDIOPLEGIA [Concomitant]
     Dosage: PUMP
     Dates: start: 20050513, end: 20050513
  9. LUMIGAN [Concomitant]
     Indication: GLAUCOMA
     Dosage: UNK
     Route: 061
  10. ZITHROMAX [Concomitant]
     Dosage: 500 UNK, UNK
     Route: 048
  11. AMICAR [Concomitant]
     Dosage: 5 G, UNK
     Route: 042
     Dates: start: 20050513, end: 20050513
  12. VERSED [Concomitant]
     Dosage: UNK
     Route: 042
     Dates: start: 20050513, end: 20050513
  13. HEPARIN [Concomitant]
     Dosage: PUMP
     Dates: start: 20050513, end: 20050513
  14. ALBUMIN (HUMAN) [Concomitant]
     Dosage: PUMP
     Dates: start: 20050513, end: 20050513
  15. GLIPIZIDE [Concomitant]
     Dosage: 5 MG, BID
     Route: 048
  16. AMICAR [Concomitant]
     Dosage: 1GM/HR
     Route: 042
     Dates: start: 20050513, end: 20050513
  17. ETOMIDATE [Concomitant]
     Dosage: UNK
     Route: 042
     Dates: start: 20050513, end: 20050513
  18. PROTAMINE SULFATE [Concomitant]
     Dosage: PUMP
     Dates: start: 20050513, end: 20050513
  19. ALBUMIN (HUMAN) [Concomitant]
     Dosage: UNK
     Dates: start: 20050516
  20. TRASYLOL [Suspect]
     Indication: PRODUCT USED FOR UNKNOWN INDICATION
     Dosage: UNK
     Route: 042
     Dates: start: 20050513
  21. PROTAMINE SULFATE [Concomitant]
     Dosage: UNK
     Route: 042
     Dates: start: 20050513, end: 20050513
  22. PANCURONIUM BROMIDE [Concomitant]
     Dosage: UNK
     Route: 042
     Dates: start: 20050513, end: 20050513
  23. ANCEF [Concomitant]
     Dosage: PUMP
     Dates: start: 20050513, end: 20050513
  24. RED BLOOD CELLS [Concomitant]
     Dosage: 2 U, UNK
     Route: 042
     Dates: start: 20050513, end: 20050513
  25. INSULIN [Concomitant]
     Dosage: PUMP
     Dates: start: 20050513, end: 20050513
  26. PLAVIX [Concomitant]
     Dosage: 75 MG, QD
     Route: 048
  27. ASPIRIN [Concomitant]
     Dosage: 81 MG, QD
     Route: 048
  28. COSOPT [Concomitant]
     Route: 061
  29. ROCURONIUM [Concomitant]
     Dosage: UNK
     Route: 042
     Dates: start: 20050513, end: 20050513
  30. FENTANYL [Concomitant]
     Dosage: UNK
     Route: 042
     Dates: start: 20050513, end: 20050513
  31. RED BLOOD CELLS [Concomitant]
     Dosage: 2 U, UNK
     Route: 042
     Dates: start: 20050516
  32. PLATELETS [Concomitant]
     Dosage: 10 U, UNK
     Route: 042
     Dates: start: 20050516
  33. LASIX [Concomitant]
     Dosage: BOLUS
     Route: 042
     Dates: start: 20050516, end: 20050517

REACTIONS (13)
  - STRESS [None]
  - UNEVALUABLE EVENT [None]
  - PAIN [None]
  - ANXIETY [None]
  - FEAR [None]
  - RENAL INJURY [None]
  - MULTI-ORGAN FAILURE [None]
  - RENAL FAILURE [None]
  - EMOTIONAL DISTRESS [None]
  - INJURY [None]
  - RENAL IMPAIRMENT [None]
  - DEATH [None]
  - ANHEDONIA [None]
